FAERS Safety Report 23100817 (Version 1)
Quarter: 2023Q4

REPORT INFORMATION
  Report Type: Spontaneous
  Country: US (occurrence: None)
  Receive Date: 20231021
  Receipt Date: 20231021
  Transmission Date: 20240110
  Serious: Yes (Hospitalization)
  Sender: FDA-Public Use
  Company Number: None

PATIENT
  Age: 75 Year
  Sex: Male

DRUGS (1)
  1. CARVEDILOL [Suspect]
     Active Substance: CARVEDILOL
     Dates: start: 20220706, end: 20230327

REACTIONS (8)
  - Bradycardia [None]
  - Hypotension [None]
  - Dizziness [None]
  - Syncope [None]
  - Memory impairment [None]
  - Cognitive disorder [None]
  - Hypovolaemia [None]
  - Dehydration [None]

NARRATIVE: CASE EVENT DATE: 20230329
